FAERS Safety Report 6030612-3 (Version None)
Quarter: 2008Q4

REPORT INFORMATION
  Report Type: 
  Country: None (occurrence: None)
  Receive Date: 20081222
  Receipt Date: 20080911
  Transmission Date: 20090506
  Serious: No
  Sender: FDA-Public Use
  Company Number: US-WYE-H05965108

PATIENT

DRUGS (1)
  1. PRISTIQ [Suspect]

REACTIONS (3)
  - ALTERED VISUAL DEPTH PERCEPTION [None]
  - MYDRIASIS [None]
  - PHOTOPHOBIA [None]
